FAERS Safety Report 5658250-2 (Version None)
Quarter: 2008Q1

REPORT INFORMATION
  Report Type: 
  Country: None (occurrence: None)
  Receive Date: 20080310
  Receipt Date: 20070117
  Transmission Date: 20080703
  Serious: No
  Sender: FDA-Public Use
  Company Number: US-BAYER-200710221BCC

PATIENT
  Sex: Female

DRUGS (3)
  1. ALEVE [Suspect]
     Indication: ARTHRALGIA
     Route: 048
  2. ALEVE [Suspect]
     Dosage: UNIT DOSE: 220 MG
     Route: 048
  3. NAPROXEN [Concomitant]
     Indication: ARTHRALGIA

REACTIONS (2)
  - ARTHRALGIA [None]
  - NO THERAPEUTIC RESPONSE [None]
